FAERS Safety Report 5299919-1 (Version None)
Quarter: 2007Q2

REPORT INFORMATION
  Report Type: 
  Country: None (occurrence: None)
  Receive Date: 20070417
  Receipt Date: 20070405
  Transmission Date: 20071010
  Serious: Yes (Other)
  Sender: FDA-Public Use
  Company Number: US-PFIZER INC-2007027678

PATIENT
  Sex: Female
  Weight: 56.2 kg

DRUGS (7)
  1. DEPO-MEDROL [Suspect]
     Indication: PAIN
     Dates: start: 20070307, end: 20070307
  2. DEPO-MEDROL [Suspect]
     Indication: SWELLING
  3. DEPO-MEDROL [Suspect]
     Indication: OSTEOARTHRITIS
  4. VALSARTAN [Suspect]
     Indication: HYPERTENSION
     Dates: start: 20070309, end: 20070404
  5. LOTREL [Suspect]
     Indication: HYPERTENSION
     Dosage: TEXT:5/10 MG; 5/10 MG-FREQ:QD:EVERY DAY
  6. VITAMINS [Concomitant]
  7. XANAX [Concomitant]

REACTIONS (3)
  - BLOOD PRESSURE INCREASED [None]
  - DIZZINESS [None]
  - EYE PAIN [None]
